FAERS Safety Report 16011617 (Version 1)
Quarter: 2019Q1

REPORT INFORMATION
  Report Type: Spontaneous
  Country: US (occurrence: US)
  Receive Date: 20190227
  Receipt Date: 20190227
  Transmission Date: 20190418
  Serious: No
  Sender: FDA-Public Use
  Company Number: US-PFIZER INC-2017008045

PATIENT
  Age: 53 Year
  Sex: Female

DRUGS (3)
  1. SKELAXIN [Suspect]
     Active Substance: METAXALONE
     Indication: PAIN
     Dosage: UNK
  2. LYRICA [Suspect]
     Active Substance: PREGABALIN
     Indication: SLEEP DISORDER
  3. LYRICA [Suspect]
     Active Substance: PREGABALIN
     Indication: PAIN
     Dosage: UNK
     Dates: start: 2008

REACTIONS (2)
  - Gait disturbance [Unknown]
  - Osteoarthritis [Unknown]
